FAERS Safety Report 9604728 (Version 2)
Quarter: 2013Q4

REPORT INFORMATION
  Report Type: Report from Study
  Country: AR (occurrence: AR)
  Receive Date: 20131008
  Receipt Date: 20131110
  Transmission Date: 20140711
  Serious: Yes (Death, Hospitalization, Other)
  Sender: FDA-Public Use
  Company Number: AR-US-EMD SERONO, INC.-7241781

PATIENT
  Age: 12 Year
  Sex: Female
  Weight: 56 kg

DRUGS (2)
  1. SAIZEN [Suspect]
     Indication: GROWTH HORMONE DEFICIENCY
     Dates: start: 201209, end: 201308
  2. LEVOTHYROXINE [Concomitant]
     Indication: PRODUCT USED FOR UNKNOWN INDICATION

REACTIONS (7)
  - Multi-organ failure [Fatal]
  - Cardiac arrest [Fatal]
  - Cerebral palsy [Fatal]
  - Pneumonia [Unknown]
  - Sepsis [Unknown]
  - Respiratory failure [Unknown]
  - Convulsion [Unknown]
